FAERS Safety Report 4748077-8 (Version None)
Quarter: 2005Q3

REPORT INFORMATION
  Report Type: 
  Country: None (occurrence: None)
  Receive Date: 20050818
  Receipt Date: 20050815
  Transmission Date: 20060218
  Serious: Yes (Death)
  Sender: FDA-Public Use
  Company Number: UG-GLAXOSMITHKLINE-B0390643A

PATIENT
  Age: 26 Year
  Sex: Female

DRUGS (3)
  1. COMBIVIR [Suspect]
     Indication: HIV INFECTION
     Dosage: 1TAB TWICE PER DAY
     Route: 048
     Dates: start: 20040802, end: 20040819
  2. ABACAVIR [Suspect]
     Indication: HIV INFECTION
     Dosage: 300MG TWICE PER DAY
     Route: 048
     Dates: start: 20040802
  3. CO-TRIMOXAZOLE [Suspect]

REACTIONS (12)
  - ANAEMIA [None]
  - DIARRHOEA [None]
  - HAEMATEMESIS [None]
  - HERPES SIMPLEX [None]
  - LYMPHOCYTE COUNT DECREASED [None]
  - NAUSEA [None]
  - NEUTROPENIA [None]
  - OTORRHOEA [None]
  - PYREXIA [None]
  - THROMBOCYTOPENIA [None]
  - URINARY TRACT INFECTION [None]
  - VOMITING [None]
